FAERS Safety Report 9233561 (Version 1)
Quarter: 2013Q2

REPORT INFORMATION
  Report Type: Spontaneous
  Country: US (occurrence: None)
  Receive Date: 20130415
  Receipt Date: 20130415
  Transmission Date: 20140414
  Serious: Yes (Other)
  Sender: FDA-Public Use
  Company Number: None

PATIENT
  Age: 53 Year
  Sex: Female
  Weight: 63.5 kg

DRUGS (1)
  1. SINGULAIR [Suspect]
     Indication: ASTHMA
     Route: 048
     Dates: start: 20121020, end: 20130315

REACTIONS (6)
  - Dyspnoea [None]
  - Middle insomnia [None]
  - Sinusitis [None]
  - Rash [None]
  - Ear pain [None]
  - Product substitution issue [None]
